FAERS Safety Report 14421082 (Version 8)
Quarter: 2018Q2

REPORT INFORMATION
  Report Type: Report from Study
  Country: US (occurrence: US)
  Receive Date: 20180122
  Receipt Date: 20180612
  Transmission Date: 20180711
  Serious: Yes (Hospitalization, Other)
  Sender: FDA-Public Use
  Company Number: US-ACTELION-A-NJ2017-164919

PATIENT
  Age: 67 Year
  Sex: Male
  Weight: 86.17 kg

DRUGS (5)
  1. VELETRI [Suspect]
     Active Substance: EPOPROSTENOL
     Dosage: 10 NG/KG, PER MIN
     Route: 042
  2. VELETRI [Suspect]
     Active Substance: EPOPROSTENOL
     Dosage: 20 NG/KG, PER MIN
     Route: 042
  3. VELETRI [Suspect]
     Active Substance: EPOPROSTENOL
     Indication: PULMONARY ARTERIAL HYPERTENSION
     Dosage: 21 NG/KG, PER MIN
     Route: 042
  4. VELETRI [Suspect]
     Active Substance: EPOPROSTENOL
     Dosage: 16 NG/KG, PER MIN
     Route: 042
  5. SILDENAFIL. [Concomitant]
     Active Substance: SILDENAFIL
     Indication: PULMONARY ARTERIAL HYPERTENSION

REACTIONS (23)
  - Gout [Unknown]
  - Fatigue [Unknown]
  - Arthralgia [Unknown]
  - Epistaxis [Unknown]
  - Pain [Unknown]
  - Anaemia [Unknown]
  - Fluid retention [Unknown]
  - Asthenia [Unknown]
  - Pain in extremity [Unknown]
  - Haemorrhage [Unknown]
  - Pain in jaw [Unknown]
  - Internal haemorrhage [Unknown]
  - Swelling [Unknown]
  - Haemoglobin decreased [Unknown]
  - Gait disturbance [Unknown]
  - Oedema peripheral [Unknown]
  - Neuralgia [Unknown]
  - Burning sensation [Unknown]
  - Haematocrit decreased [Unknown]
  - Weight decreased [Unknown]
  - Flushing [Unknown]
  - Dyspnoea [Recovering/Resolving]
  - Memory impairment [Unknown]
